FAERS Safety Report 16606421 (Version 1)
Quarter: 2019Q3

REPORT INFORMATION
  Report Type: Spontaneous
  Country: US (occurrence: US)
  Receive Date: 20190722
  Receipt Date: 20190722
  Transmission Date: 20191004
  Serious: No
  Sender: FDA-Public Use
  Company Number: US-BIOGEN-2019BI00764774

PATIENT
  Age: 33 Year
  Sex: Female
  Weight: 82.17 kg

DRUGS (3)
  1. TECFIDERA [Suspect]
     Active Substance: DIMETHYL FUMARATE
     Route: 048
  2. FLONASE [Concomitant]
     Active Substance: FLUTICASONE PROPIONATE
     Route: 065
  3. TECFIDERA [Suspect]
     Active Substance: DIMETHYL FUMARATE
     Indication: MULTIPLE SCLEROSIS
     Route: 048
     Dates: start: 20190715

REACTIONS (4)
  - Glossodynia [Unknown]
  - Flushing [Unknown]
  - Glossitis [Unknown]
  - Dry mouth [Unknown]

NARRATIVE: CASE EVENT DATE: 20190715
